FAERS Safety Report 7306477-6 (Version None)
Quarter: 2011Q1

REPORT INFORMATION
  Report Type: 
  Country: None (occurrence: None)
  Receive Date: 20110210
  Receipt Date: 20110201
  Transmission Date: 20110831
  Serious: Yes (Other)
  Sender: FDA-Public Use
  Company Number: 821491

PATIENT
  Age: 70 Year
  Sex: Female

DRUGS (7)
  1. (LOSAPREX) [Concomitant]
  2. SIMVASTATIN [Concomitant]
  3. HYDROCORTISONE [Concomitant]
  4. CARBOPLATIN [Suspect]
     Indication: NEOPLASM MALIGNANT
     Dosage: 418 MG MILLIGRAM(S), INTRAVENOUS
     Route: 042
     Dates: start: 20101005, end: 20110125
  5. (CHLORPHENAMINE) [Concomitant]
  6. ONDANSETRON [Concomitant]
  7. (CAELYX) [Concomitant]

REACTIONS (3)
  - BLOOD PRESSURE INCREASED [None]
  - SKIN DISORDER [None]
  - DYSPNOEA [None]
